FAERS Safety Report 6922585-3 (Version None)
Quarter: 2010Q3

REPORT INFORMATION
  Report Type: 
  Country: None (occurrence: None)
  Receive Date: 20100813
  Receipt Date: 20100714
  Transmission Date: 20110219
  Serious: Yes (Hospitalization)
  Sender: FDA-Public Use
  Company Number: IL-BAYER-201028066GPV

PATIENT
  Age: 62 Year
  Sex: Male
  Weight: 79 kg

DRUGS (12)
  1. SORAFENIB [Suspect]
     Indication: HEPATIC NEOPLASM MALIGNANT
     Dosage: TOTAL DAILY DOSE: 800 MG  UNIT DOSE: 200 MG
     Route: 048
     Dates: start: 20100622
  2. SORAFENIB [Suspect]
     Dosage: TOTAL DAILY DOSE: 800 MG  UNIT DOSE: 200 MG
     Route: 048
     Dates: start: 20100531, end: 20100613
  3. ERLOTINIB/PLACEBO [Suspect]
     Indication: HEPATIC NEOPLASM MALIGNANT
     Route: 048
     Dates: start: 20100531, end: 20100613
  4. ERLOTINIB/PLACEBO [Suspect]
     Route: 048
     Dates: start: 20100622
  5. PROLOL [Concomitant]
     Indication: HYPERTENSION
     Dates: start: 20080101
  6. PRILOSEC [Concomitant]
     Indication: VARICES OESOPHAGEAL
     Dates: start: 20000101, end: 20100531
  7. FUSID [Concomitant]
     Indication: HYPERTENSION
     Dates: start: 20080101
  8. ZEFFIX [Concomitant]
     Indication: HEPATITIS B
     Dates: start: 20060101
  9. HEPSERA [Concomitant]
     Indication: HEPATITIS B
     Dates: start: 20071201
  10. DURAGESIC-100 [Concomitant]
     Indication: BACK PAIN
     Dates: start: 20100503
  11. OXYCOD [Concomitant]
     Indication: BACK PAIN
     Dates: start: 20100510
  12. ZANTAC [Concomitant]
     Indication: VARICES OESOPHAGEAL
     Dates: start: 20100531

REACTIONS (1)
  - BILIARY SEPSIS [None]
